FAERS Safety Report 9373820 (Version 1)
Quarter: 2013Q2

REPORT INFORMATION
  Report Type: Report from Study
  Country: US (occurrence: US)
  Receive Date: 20130628
  Receipt Date: 20130628
  Transmission Date: 20140414
  Serious: Yes (Death)
  Sender: FDA-Public Use
  Company Number: US-ROCHE-1241422

PATIENT
  Sex: Female
  Weight: 56.75 kg

DRUGS (1)
  1. LUCENTIS [Suspect]
     Indication: AGE-RELATED MACULAR DEGENERATION
     Dosage: LEFT EYE MONTHLY, 6 MONTHS IN A ROW.
     Route: 065
     Dates: start: 201206, end: 201304

REACTIONS (8)
  - Cerebral haemorrhage [Fatal]
  - Dizziness [Unknown]
  - Rash [Unknown]
  - Epistaxis [Unknown]
  - Headache [Unknown]
  - Local swelling [Unknown]
  - Weight fluctuation [Unknown]
  - Malaise [Unknown]
